FAERS Safety Report 13795229 (Version 1)
Quarter: 2017Q3

REPORT INFORMATION
  Report Type: Spontaneous
  Country: US (occurrence: US)
  Receive Date: 20170726
  Receipt Date: 20170726
  Transmission Date: 20171127
  Serious: No
  Sender: FDA-Public Use
  Company Number: US-NEUROCRINE BIOSCIENCES INC.-2017NBI00372

PATIENT
  Age: 45 Year
  Sex: Male

DRUGS (24)
  1. METOPROLOL. [Concomitant]
     Active Substance: METOPROLOL
  2. INVEGA SUSTENNA [Concomitant]
     Active Substance: PALIPERIDONE PALMITATE
  3. MULTIVITAMIN WITH MINERALS [Concomitant]
     Active Substance: MINERALS\VITAMINS
  4. CARAFATE [Concomitant]
     Active Substance: SUCRALFATE
  5. LYRICA [Concomitant]
     Active Substance: PREGABALIN
  6. KEPPRA [Concomitant]
     Active Substance: LEVETIRACETAM
  7. CATAPRES [Concomitant]
     Active Substance: CLONIDINE HYDROCHLORIDE
  8. SYMBICORT [Concomitant]
     Active Substance: BUDESONIDE\FORMOTEROL FUMARATE DIHYDRATE
  9. LISINOPRIL. [Concomitant]
     Active Substance: LISINOPRIL
  10. MIRTAZAPINE. [Concomitant]
     Active Substance: MIRTAZAPINE
  11. LEXAPRO [Concomitant]
     Active Substance: ESCITALOPRAM OXALATE
  12. INGREZZA [Suspect]
     Active Substance: VALBENAZINE
     Indication: TARDIVE DYSKINESIA
     Route: 048
     Dates: start: 20170616, end: 201706
  13. PROVENTIL INHALER PRN [Concomitant]
  14. INGREZZA [Suspect]
     Active Substance: VALBENAZINE
     Route: 048
     Dates: start: 201706, end: 20170624
  15. VITAMIN B1 [Concomitant]
     Active Substance: THIAMINE HYDROCHLORIDE
  16. OLANZAPINE. [Concomitant]
     Active Substance: OLANZAPINE
  17. ACAMPROSATE [Concomitant]
     Active Substance: ACAMPROSATE
  18. NALTREXONE [Concomitant]
     Active Substance: NALTREXONE
  19. PRILOSEC [Concomitant]
     Active Substance: OMEPRAZOLE MAGNESIUM
  20. SPIRIVA [Concomitant]
     Active Substance: TIOTROPIUM BROMIDE MONOHYDRATE
  21. FOLIC ACID. [Concomitant]
     Active Substance: FOLIC ACID
  22. NICOTINE TRANSDERMAL SYSTEM [Concomitant]
     Active Substance: NICOTINE
  23. LAMICTAL [Concomitant]
     Active Substance: LAMOTRIGINE
  24. LACTULOSE. [Concomitant]
     Active Substance: LACTULOSE

REACTIONS (2)
  - Feeling abnormal [Unknown]
  - Seizure [Recovered/Resolved]

NARRATIVE: CASE EVENT DATE: 20170622
